FAERS Safety Report 17758981 (Version 4)
Quarter: 2022Q1

REPORT INFORMATION
  Report Type: Spontaneous
  Country: US (occurrence: US)
  Receive Date: 20200508
  Receipt Date: 20220113
  Transmission Date: 20220423
  Serious: Yes (Hospitalization, Other)
  Sender: FDA-Public Use
  Company Number: US-AMGEN-USASP2020072722

PATIENT

DRUGS (1)
  1. TALIMOGENE LAHERPAREPVEC [Suspect]
     Active Substance: TALIMOGENE LAHERPAREPVEC
     Indication: Metastatic malignant melanoma
     Dosage: UNK
     Route: 065

REACTIONS (12)
  - Drug reaction with eosinophilia and systemic symptoms [Unknown]
  - Sepsis [Unknown]
  - Metastatic malignant melanoma [Unknown]
  - Injection site infection [Unknown]
  - Injection site cellulitis [Unknown]
  - Therapy partial responder [Unknown]
  - Injection site irritation [Unknown]
  - Oedema [Unknown]
  - Off label use [Unknown]
  - Injection site ulcer [Unknown]
  - Pain [Unknown]
  - Influenza like illness [Unknown]
